FAERS Safety Report 8512622-7 (Version None)
Quarter: 2012Q2

REPORT INFORMATION
  Report Type: 
  Country: None (occurrence: None)
  Receive Date: 20120405
  Receipt Date: 20080821
  Transmission Date: 20120825
  Serious: Yes (Other)
  Sender: FDA-Public Use
  Company Number: PHEH2008US07425

PATIENT
  Age: 83 Year
  Sex: Female

DRUGS (4)
  1. RECLAST [Suspect]
     Indication: OSTEOPOROSIS
     Dosage: 5 MG, INFUSION
     Dates: start: 20080818, end: 20080818
  2. PRILOSEC [Concomitant]
  3. SYNTHROID [Concomitant]
  4. VITAMIN D [Concomitant]

REACTIONS (7)
  - BONE PAIN [None]
  - PHLEBITIS [None]
  - AURA [None]
  - PYREXIA [None]
  - MYALGIA [None]
  - DISORIENTATION [None]
  - HEADACHE [None]
